FAERS Safety Report 9683602 (Version 1)
Quarter: 2013Q4

REPORT INFORMATION
  Report Type: Report from Study
  Country: CR (occurrence: CR)
  Receive Date: 20131112
  Receipt Date: 20131112
  Transmission Date: 20140711
  Serious: Yes (Hospitalization)
  Sender: FDA-Public Use
  Company Number: CR-ROCHE-1300504

PATIENT
  Age: 59 Year
  Sex: Female

DRUGS (1)
  1. BONVIVA [Suspect]
     Indication: PROPHYLAXIS
     Route: 048
     Dates: start: 20071115, end: 201301

REACTIONS (1)
  - Hip fracture [Recovered/Resolved]
